FAERS Safety Report 8959516 (Version 2)
Quarter: 2012Q4

REPORT INFORMATION
  Report Type: 
  Country: CZ (occurrence: CZ)
  Receive Date: 20121212
  Receipt Date: 20121217
  Transmission Date: 20130627
  Serious: Yes (Hospitalization, Other)
  Sender: FDA-Public Use
  Company Number: CZ-ROCHE-1166885

PATIENT
  Age: 59 Year
  Sex: Male

DRUGS (10)
  1. MABTHERA [Suspect]
     Indication: CHRONIC LYMPHOCYTIC LEUKAEMIA
     Route: 042
     Dates: start: 20121126, end: 20121127
  2. INDAP [Concomitant]
     Indication: HYPERTENSION
  3. LOKREN [Concomitant]
     Indication: HYPERTENSION
  4. PARALEN [Concomitant]
  5. DITHIADEN [Concomitant]
  6. MILURIT [Concomitant]
     Indication: HYPERURICAEMIA
  7. COTRIMOXAZOLE [Concomitant]
     Indication: PNEUMONIA PNEUMOCOCCAL
     Route: 065
  8. SOLU-MEDROL [Concomitant]
     Route: 042
     Dates: start: 20121126, end: 20121127
  9. FLUDARABINE [Concomitant]
     Indication: CHRONIC LYMPHOCYTIC LEUKAEMIA
     Route: 042
     Dates: start: 20121127, end: 20121129
  10. ENDOXAN [Concomitant]
     Indication: CHRONIC LYMPHOCYTIC LEUKAEMIA
     Route: 042
     Dates: start: 20121127, end: 20121129

REACTIONS (3)
  - Cerebrovascular accident [Unknown]
  - Ischaemic stroke [Recovered/Resolved]
  - Vestibular disorder [Unknown]
